FAERS Safety Report 23165947 (Version 1)
Quarter: 2023Q4

REPORT INFORMATION
  Report Type: Spontaneous
  Country: US (occurrence: None)
  Receive Date: 20231109
  Receipt Date: 20231109
  Transmission Date: 20240109
  Serious: Yes (Death)
  Sender: FDA-Public Use
  Company Number: None

PATIENT
  Age: 70 Year
  Sex: Female

DRUGS (7)
  1. ALECENSA [Suspect]
     Active Substance: ALECTINIB HYDROCHLORIDE
     Indication: Non-small cell lung cancer
     Dosage: 150MG ORAL??DIRECTIONS: TK 4 CS (600 MG) PO BID WITH FOOD. DO NOT CRUSH, CHEW, DISSOLVE, OR OPEN. S
     Route: 048
     Dates: start: 20210901
  2. LINZESS [Concomitant]
     Active Substance: LINACLOTIDE
  3. ATORVASTATIN [Concomitant]
  4. HYDRALAZINE [Concomitant]
  5. HYDROCHLOROTHIAZIDE [Concomitant]
     Active Substance: HYDROCHLOROTHIAZIDE
  6. LOSARTAN [Concomitant]
  7. LORBRENA [Concomitant]
     Active Substance: LORLATINIB

REACTIONS (1)
  - Non-small cell lung cancer [None]

NARRATIVE: CASE EVENT DATE: 20231108
